FAERS Safety Report 5261875-X (Version None)
Quarter: 2007Q1

REPORT INFORMATION
  Report Type: 
  Country: None (occurrence: None)
  Receive Date: 20070310
  Receipt Date: 20070228
  Transmission Date: 20070707
  Serious: Yes (Hospitalization, Disabling)
  Sender: FDA-Public Use
  Company Number: 2006UW03010

PATIENT
  Sex: Female
  Weight: 87.3 kg

DRUGS (7)
  1. SEROQUEL [Suspect]
     Indication: PARANOIA
     Route: 048
     Dates: start: 20021101
  2. SEROQUEL [Suspect]
     Indication: ANXIETY
     Route: 048
     Dates: start: 20021101
  3. SEROQUEL [Suspect]
     Indication: SLEEP DISORDER
     Route: 048
     Dates: start: 20021101
  4. SEROQUEL [Suspect]
     Route: 048
     Dates: start: 20060728
  5. SEROQUEL [Suspect]
     Route: 048
     Dates: start: 20060728
  6. SEROQUEL [Suspect]
     Route: 048
     Dates: start: 20060728
  7. GEODON [Concomitant]
     Dates: start: 20050708

REACTIONS (5)
  - ARTHRALGIA [None]
  - BACK PAIN [None]
  - BIPOLAR I DISORDER [None]
  - DIABETES MELLITUS [None]
  - WEIGHT INCREASED [None]
